FAERS Safety Report 22306225 (Version 2)
Quarter: 2023Q2

REPORT INFORMATION
  Report Type: Spontaneous
  Country: US (occurrence: US)
  Receive Date: 20230511
  Receipt Date: 20230526
  Transmission Date: 20230721
  Serious: No
  Sender: FDA-Public Use
  Company Number: US-BoehringerIngelheim-2023-BI-236770

PATIENT
  Age: 42 Year
  Sex: Male

DRUGS (1)
  1. JARDIANCE [Suspect]
     Active Substance: EMPAGLIFLOZIN
     Indication: Product used for unknown indication

REACTIONS (2)
  - Blood glucose increased [Unknown]
  - Drug ineffective [Unknown]

NARRATIVE: CASE EVENT DATE: 20230510
